FAERS Safety Report 6341509-3 (Version None)
Quarter: 2009Q3

REPORT INFORMATION
  Report Type: 
  Country: None (occurrence: None)
  Receive Date: 20090902
  Receipt Date: 20090902
  Transmission Date: 20100115
  Serious: Yes (Other)
  Sender: FDA-Public Use
  Company Number: None

PATIENT
  Age: 30 Year
  Sex: Female
  Weight: 70.3075 kg

DRUGS (8)
  1. LITHIUM CITRATE [Suspect]
     Indication: MAJOR DEPRESSION
     Dosage: 600-900MG BID PO
     Route: 048
     Dates: start: 20090805, end: 20090814
  2. FAMOTIDINE [Concomitant]
  3. DOCUSATE [Concomitant]
  4. MAGNESIUM HYDROXIDE TAB [Concomitant]
  5. HALOPERIDOL [Concomitant]
  6. FERROUS SULFATE TAB [Concomitant]
  7. PRENATAL MULTIVITIMIN [Concomitant]
  8. INSULIN SLIDING SCALE [Concomitant]

REACTIONS (7)
  - CONSTIPATION [None]
  - DRUG LEVEL BELOW THERAPEUTIC [None]
  - GASTROINTESTINAL SOUNDS ABNORMAL [None]
  - HYPERPHAGIA [None]
  - MALAISE [None]
  - NAUSEA [None]
  - VOMITING [None]
